FAERS Safety Report 4633213-4 (Version None)
Quarter: 2005Q2

REPORT INFORMATION
  Report Type: 
  Country: None (occurrence: None)
  Receive Date: 20050408
  Receipt Date: 20050323
  Transmission Date: 20051028
  Serious: Yes (Other)
  Sender: FDA-Public Use
  Company Number: DSA_26177_2005

PATIENT
  Sex: Male

DRUGS (2)
  1. DILZEM - SLOW RELEASE ^ELAN^ [Suspect]
     Indication: HYPERTENSION
     Dosage: 180 MG PO
     Route: 048
  2. DILZEM - SLOW RELEASE ^ELAN^ [Suspect]
     Indication: HYPERTENSION
     Dosage: 180 MG PO
     Route: 048

REACTIONS (2)
  - HEART RATE INCREASED [None]
  - HYPOTENSION [None]
